FAERS Safety Report 8621615-0 (Version None)
Quarter: 2012Q3

REPORT INFORMATION
  Report Type: 
  Country: None (occurrence: None)
  Receive Date: 20120825
  Receipt Date: 20120810
  Transmission Date: 20120928
  Serious: Yes (Other)
  Sender: FDA-Public Use
  Company Number: JP-009507513-1208JPN005503

PATIENT

DRUGS (10)
  1. NAPA (ACETAMINOPHEN) [Concomitant]
     Dosage: 0.5 MG, TIW
     Route: 048
     Dates: start: 20110401
  2. RHEUMATREX [Concomitant]
     Indication: RHEUMATOID ARTHRITIS
     Dosage: 4 MG, QW
     Route: 048
     Dates: start: 20100101
  3. REBETOL [Suspect]
     Dosage: 200 MG, BID
     Route: 048
     Dates: start: 20110415
  4. PROGRAF [Concomitant]
     Indication: RHEUMATOID ARTHRITIS
     Dosage: 1 MG, QD
     Route: 048
     Dates: start: 20100101
  5. REBETOL [Suspect]
     Indication: HEPATITIS C
     Dosage: 200 MG IN MORNING, 400 MG IN EVENING
     Route: 048
     Dates: start: 20110317, end: 20110414
  6. LANSOPRAZOLE [Concomitant]
     Indication: PROPHYLAXIS
     Dosage: 15 MG, QD
     Route: 048
     Dates: start: 20110317
  7. INTERFERON BETA NOS [Suspect]
     Dosage: 6 MILLION IU, TIW
     Route: 041
     Dates: start: 20110401
  8. DEPAS [Concomitant]
     Indication: DEPRESSION
     Dosage: 0.5 MG, PRN
     Route: 048
  9. INTERFERON BETA NOS [Suspect]
     Indication: HEPATITIS C
     Dosage: 6 MILLION IU, QD
     Route: 041
     Dates: start: 20110317, end: 20110330
  10. NAPA (ACETAMINOPHEN) [Concomitant]
     Indication: PROPHYLAXIS
     Dosage: 0.5 G, QD
     Route: 048
     Dates: start: 20100817, end: 20120330

REACTIONS (1)
  - NEUTROPHIL COUNT DECREASED [None]
